FAERS Safety Report 23287259 (Version 2)
Quarter: 2024Q2

REPORT INFORMATION
  Report Type: Report from Study
  Country: US (occurrence: US)
  Receive Date: 20231212
  Receipt Date: 20240402
  Transmission Date: 20240716
  Serious: Yes (Other)
  Sender: FDA-Public Use
  Company Number: US-TAKEDA-2023TUS117676

PATIENT
  Age: 64 Year
  Sex: Male

DRUGS (1)
  1. VEDOLIZUMAB [Suspect]
     Active Substance: VEDOLIZUMAB
     Indication: Product used for unknown indication
     Dosage: UNK
     Route: 065

REACTIONS (5)
  - Atrioventricular block second degree [Unknown]
  - Limb discomfort [Unknown]
  - Respiratory tract infection viral [Unknown]
  - COVID-19 [Unknown]
  - Influenza [Unknown]

NARRATIVE: CASE EVENT DATE: 20231004
